FAERS Safety Report 14560532 (Version 2)
Quarter: 2018Q1

REPORT INFORMATION
  Report Type: Spontaneous
  Country: US (occurrence: US)
  Receive Date: 20180222
  Receipt Date: 20180301
  Transmission Date: 20180509
  Serious: No
  Sender: FDA-Public Use
  Company Number: US-009507513-1802USA007876

PATIENT
  Sex: Male

DRUGS (1)
  1. PROVENTIL [Suspect]
     Active Substance: ALBUTEROL
     Dosage: AS NEEDED, PRN
     Dates: start: 201706

REACTIONS (4)
  - Tooth discolouration [Unknown]
  - Tooth disorder [Unknown]
  - Product quality issue [Unknown]
  - Device colour issue [Unknown]

NARRATIVE: CASE EVENT DATE: 2017
